FAERS Safety Report 8578238-1 (Version None)
Quarter: 2012Q3

REPORT INFORMATION
  Report Type: 
  Country: None (occurrence: None)
  Receive Date: 20120808
  Receipt Date: 20120802
  Transmission Date: 20120928
  Serious: No
  Sender: FDA-Public Use
  Company Number: US-PFIZER INC-2012188456

PATIENT
  Age: 61 Year
  Sex: Male
  Weight: 100 kg

DRUGS (6)
  1. CELEBREX [Suspect]
     Indication: OSTEOARTHRITIS
     Dosage: 100 MG, 2X/DAY
     Route: 048
     Dates: start: 20120725, end: 20120729
  2. DICLOFENAC [Concomitant]
     Indication: INFLAMMATION
     Dosage: UNK
  3. CELEBREX [Suspect]
     Indication: PAIN
  4. MELOXICAM [Concomitant]
     Indication: INFLAMMATION
     Dosage: UNK
  5. CELEBREX [Suspect]
     Indication: PAIN IN EXTREMITY
  6. CELEBREX [Suspect]
     Indication: JOINT SWELLING

REACTIONS (2)
  - PAIN [None]
  - DRUG INEFFECTIVE [None]
